FAERS Safety Report 4470171-X (Version None)
Quarter: 2004Q3

REPORT INFORMATION
  Report Type: 
  Country: None (occurrence: None)
  Receive Date: 20040910
  Receipt Date: 20040730
  Transmission Date: 20050211
  Serious: No
  Sender: FDA-Public Use
  Company Number: 2004227070US

PATIENT
  Sex: Male

DRUGS (2)
  1. BEXTRA [Suspect]
     Indication: PAIN
     Dosage: 10 MG, QD
  2. ASPIRIN [Suspect]
     Dosage: QD

REACTIONS (4)
  - DRUG INEFFECTIVE [None]
  - DRUG INTERACTION [None]
  - HEARING IMPAIRED [None]
  - HYPOAESTHESIA [None]
